FAERS Safety Report 6999684-3 (Version None)
Quarter: 2010Q3

REPORT INFORMATION
  Report Type: 
  Country: None (occurrence: None)
  Receive Date: 20100920
  Receipt Date: 20100527
  Transmission Date: 20110219
  Serious: Yes (Other)
  Sender: FDA-Public Use
  Company Number: US-ASTRAZENECA-2008UW13532

PATIENT
  Sex: Male
  Weight: 97.5 kg

DRUGS (10)
  1. SEROQUEL [Suspect]
     Indication: BIPOLAR DISORDER
     Route: 048
     Dates: start: 20020101, end: 20050101
  2. SEROQUEL [Suspect]
     Indication: SLEEP DISORDER
     Route: 048
     Dates: start: 20020101, end: 20050101
  3. SEROQUEL [Suspect]
     Indication: MOOD SWINGS
     Route: 048
     Dates: start: 20020101, end: 20050101
  4. ABILIFY [Concomitant]
     Dates: start: 20010101, end: 20020101
  5. GEODON [Concomitant]
     Dates: start: 20010101, end: 20020101
  6. HALDOL [Concomitant]
     Dates: start: 20010101, end: 20020101
  7. RISPERDAL [Concomitant]
     Dates: start: 20010101, end: 20020101
  8. THORAZINE [Concomitant]
     Dates: start: 19910101, end: 19920101
  9. THORAZINE [Concomitant]
     Dates: start: 20010101, end: 20020101
  10. ZYPREXA [Concomitant]
     Dates: start: 20020101, end: 20050101

REACTIONS (7)
  - BLOOD CHOLESTEROL INCREASED [None]
  - GLUCOSE TOLERANCE IMPAIRED [None]
  - HYPERLIPIDAEMIA [None]
  - OBESITY [None]
  - PANCREATITIS [None]
  - TARDIVE DYSKINESIA [None]
  - WEIGHT INCREASED [None]
